FAERS Safety Report 5608113-3 (Version None)
Quarter: 2008Q1

REPORT INFORMATION
  Report Type: 
  Country: None (occurrence: None)
  Receive Date: 20080130
  Receipt Date: 20080121
  Transmission Date: 20080703
  Serious: Yes (Hospitalization)
  Sender: FDA-Public Use
  Company Number: CA-ROCHE-543036

PATIENT
  Sex: Female

DRUGS (2)
  1. ROCALTROL [Suspect]
     Indication: OSTEOMALACIA
     Dosage: DOSAGE REGIMEN REPORTED AS 1X OD
     Route: 048
     Dates: end: 20080101
  2. VITAMIN D3 [Concomitant]
     Dosage: DOSAGE REGIMEN REPORTED AS 1 XOD.
     Route: 048
     Dates: end: 20080101

REACTIONS (3)
  - HYPERCALCAEMIA [None]
  - OVERDOSE [None]
  - RENAL FAILURE [None]
